FAERS Safety Report 8867345 (Version 1)
Quarter: 2012Q4

REPORT INFORMATION
  Report Type: 
  Country: US (occurrence: US)
  Receive Date: 20121025
  Receipt Date: 20121025
  Transmission Date: 20130627
  Serious: No
  Sender: FDA-Public Use
  Company Number: US-AMGEN-USASP2012016244

PATIENT
  Age: 36 Year
  Sex: Female
  Weight: 78.01 kg

DRUGS (8)
  1. ENBREL [Suspect]
     Indication: PRODUCT USED FOR UNKNOWN INDICATION
     Dosage: 50 mg, qwk
     Route: 058
  2. PROTONIX [Concomitant]
     Dosage: 40 mg, UNK
  3. XANAX [Concomitant]
     Dosage: 1 mg, UNK
  4. PRISTIQ [Concomitant]
     Dosage: 50 mg, UNK
  5. PLAQUENIL                          /00072602/ [Concomitant]
     Dosage: 200 mg, UNK
  6. FOLIC ACID [Concomitant]
     Dosage: 5 mg, UNK
  7. SEASONIQUE [Concomitant]
     Dosage: UNK
  8. MULTIVITAMIN                       /01229101/ [Concomitant]
     Dosage: UNK

REACTIONS (4)
  - Gait disturbance [Unknown]
  - Arthritis [Unknown]
  - Sinusitis [Unknown]
  - Atypical pneumonia [Unknown]
